FAERS Safety Report 20612837 (Version 1)
Quarter: 2022Q1

REPORT INFORMATION
  Report Type: Spontaneous
  Country: US (occurrence: US)
  Receive Date: 20220318
  Receipt Date: 20220318
  Transmission Date: 20220423
  Serious: Yes (Hospitalization)
  Sender: FDA-Public Use
  Company Number: US-HLS-202200258

PATIENT
  Age: 28 Year
  Sex: Male

DRUGS (2)
  1. CLOZAPINE [Suspect]
     Active Substance: CLOZAPINE
     Dosage: NIGHTLY AND THE DOSE WAS SLOWLY TITRATED UP TO 175 MG TWICE DAILY.
     Route: 048
  2. SERTRALINE [Concomitant]
     Active Substance: SERTRALINE HYDROCHLORIDE
     Indication: Schizoaffective disorder depressive type
     Route: 065

REACTIONS (9)
  - Cough [Unknown]
  - Hypoxia [Unknown]
  - Night sweats [Unknown]
  - Infectious pleural effusion [Unknown]
  - Eosinophilia [Recovered/Resolved]
  - Pleural effusion [Recovered/Resolved]
  - Tachycardia [Unknown]
  - Tuberculosis [Unknown]
  - Weight increased [Unknown]
